FAERS Safety Report 7753369-4 (Version None)
Quarter: 2011Q3

REPORT INFORMATION
  Report Type: 
  Country: None (occurrence: None)
  Receive Date: 20110913
  Receipt Date: 20110829
  Transmission Date: 20111222
  Serious: Yes (Hospitalization)
  Sender: FDA-Public Use
  Company Number: 1000023018

PATIENT
  Age: 40 Year
  Sex: Male

DRUGS (5)
  1. CORTISONE (CORTISONE) (CORTISONE) [Concomitant]
  2. OMEPRAZOLE [Concomitant]
  3. ROFLUMILAST (ROFLUMILAST) (500 MILLIGRAM, TABLETS) [Suspect]
     Indication: HYPOVENTILATION
     Dosage: 500 MCG (500 MCG, 1 IN 1 D), ORAL, 500 MCG (500 MCG, 1 IN 1 D, ORAL
     Route: 048
     Dates: start: 20110707, end: 20110727
  4. ROFLUMILAST (ROFLUMILAST) (500 MILLIGRAM, TABLETS) [Suspect]
     Indication: CHRONIC OBSTRUCTIVE PULMONARY DISEASE
     Dosage: 500 MCG (500 MCG, 1 IN 1 D), ORAL, 500 MCG (500 MCG, 1 IN 1 D, ORAL
     Route: 048
     Dates: start: 20110707, end: 20110727
  5. ROFLUMILAST (ROFLUMILAST) (500 MILLIGRAM, TABLETS) [Suspect]
     Indication: RESPIRATORY FAILURE
     Dosage: 500 MCG (500 MCG, 1 IN 1 D), ORAL, 500 MCG (500 MCG, 1 IN 1 D, ORAL
     Route: 048
     Dates: start: 20110707, end: 20110727

REACTIONS (5)
  - SENSATION OF FOREIGN BODY [None]
  - SLEEP DISORDER [None]
  - NERVOUSNESS [None]
  - ANXIETY [None]
  - MENTAL DISORDER [None]
